FAERS Safety Report 22381838 (Version 1)
Quarter: 2023Q2

REPORT INFORMATION
  Report Type: Spontaneous
  Country: GB (occurrence: None)
  Receive Date: 20230530
  Receipt Date: 20230530
  Transmission Date: 20230722
  Serious: Yes (Hospitalization)
  Sender: FDA-Public Use
  Company Number: GB-ROCHE-2980856

PATIENT
  Sex: Female

DRUGS (3)
  1. TOCILIZUMAB [Suspect]
     Active Substance: TOCILIZUMAB
     Indication: Rheumatoid arthritis
     Route: 058
  2. MELATONIN [Concomitant]
     Active Substance: MELATONIN
  3. SOLRIAMFETOL [Concomitant]
     Active Substance: SOLRIAMFETOL

REACTIONS (5)
  - Tooth disorder [Unknown]
  - COVID-19 [Unknown]
  - Urinary tract infection [Unknown]
  - Lower respiratory tract infection [Unknown]
  - Eye disorder [Unknown]

NARRATIVE: CASE EVENT DATE: 20220624
